FAERS Safety Report 22629997 (Version 1)
Quarter: 2023Q2

REPORT INFORMATION
  Report Type: Spontaneous
  Country: IL (occurrence: IL)
  Receive Date: 20230622
  Receipt Date: 20230622
  Transmission Date: 20230722
  Serious: Yes (Other)
  Sender: FDA-Public Use
  Company Number: IL-TEVAIL-2023-IL-2898509

PATIENT
  Sex: Male

DRUGS (1)
  1. SPIRONOLACTONE [Suspect]
     Active Substance: SPIRONOLACTONE
     Indication: Cardiac disorder
     Route: 065
     Dates: start: 2022

REACTIONS (2)
  - Anaemia [Unknown]
  - Asthenia [Unknown]

NARRATIVE: CASE EVENT DATE: 20230301
